FAERS Safety Report 16368488 (Version 1)
Quarter: 2019Q2

REPORT INFORMATION
  Report Type: Spontaneous
  Country: IL (occurrence: IL)
  Receive Date: 20190529
  Receipt Date: 20190529
  Transmission Date: 20190711
  Serious: Yes (Hospitalization, Other)
  Sender: FDA-Public Use
  Company Number: IL-GLAXOSMITHKLINE-IL2019GSK093408

PATIENT
  Sex: Male

DRUGS (1)
  1. NUCALA [Suspect]
     Active Substance: MEPOLIZUMAB
     Indication: EOSINOPHILIC GRANULOMATOSIS WITH POLYANGIITIS
     Dosage: 300 MG, UNK
     Route: 058
     Dates: start: 2019

REACTIONS (4)
  - Nephrolithiasis [Unknown]
  - Abdominal pain [Unknown]
  - Fall [Unknown]
  - Sepsis [Unknown]

NARRATIVE: CASE EVENT DATE: 2019
